FAERS Safety Report 11640280 (Version 1)
Quarter: 2015Q4

REPORT INFORMATION
  Report Type: Spontaneous
  Country: US (occurrence: None)
  Receive Date: 20151016
  Receipt Date: 20151016
  Transmission Date: 20160304
  Serious: Yes (Life-Threatening)
  Sender: FDA-Public Use
  Company Number: None

PATIENT
  Age: 67 Year
  Sex: Male
  Weight: 113.1 kg

DRUGS (1)
  1. ARTICAINE/EPINEPHRINE [Suspect]
     Active Substance: ARTICAINE\EPINEPHRINE
     Indication: SURGERY
     Route: 042
     Dates: start: 20150806, end: 20150806

REACTIONS (4)
  - Confusional state [None]
  - Hypertension [None]
  - Sedation [None]
  - Tachycardia [None]

NARRATIVE: CASE EVENT DATE: 20150806
